FAERS Safety Report 20049300 (Version 1)
Quarter: 2021Q4

REPORT INFORMATION
  Report Type: Spontaneous
  Country: US (occurrence: US)
  Receive Date: 20211109
  Receipt Date: 20211109
  Transmission Date: 20220303
  Serious: No
  Sender: FDA-Public Use
  Company Number: US-BRISTOL-MYERS SQUIBB COMPANY-BMS-2021-115653

PATIENT
  Age: 18 Year
  Sex: Female
  Weight: 99.79 kg

DRUGS (2)
  1. ELIQUIS [Suspect]
     Active Substance: APIXABAN
     Indication: Embolism venous
     Dosage: 5 MILLIGRAM, BID
     Route: 048
     Dates: start: 202107
  2. PROGESTERONE [Suspect]
     Active Substance: PROGESTERONE
     Indication: Polycystic ovaries
     Dosage: UNK
     Route: 065
     Dates: start: 202107

REACTIONS (4)
  - Anaemia [Unknown]
  - Acne [Unknown]
  - Muscle spasms [Unknown]
  - Heavy menstrual bleeding [Unknown]
